FAERS Safety Report 13122087 (Version 3)
Quarter: 2017Q3

REPORT INFORMATION
  Report Type: Report from Study
  Country: None (occurrence: BR)
  Receive Date: 20170117
  Receipt Date: 20170814
  Transmission Date: 20171127
  Serious: Yes (Disabling, Other)
  Sender: FDA-Public Use
  Company Number: BR-ABBVIE-17K-020-1834618-00

PATIENT
  Age: 55 Year
  Sex: Female
  Weight: 73 kg

DRUGS (6)
  1. DIPYRONE [Concomitant]
     Active Substance: DIPYRONE
     Dosage: 2 OR 3 TABLETS DAILY
     Route: 048
     Dates: start: 201704
  2. HUMIRA [Suspect]
     Active Substance: ADALIMUMAB
     Indication: PSORIATIC ARTHROPATHY
     Route: 058
     Dates: start: 20160824
  3. BESEROL (CHLORMEZANONE\METAMIZOLE SODIUM) [Concomitant]
     Active Substance: CHLORMEZANONE\METAMIZOLE SODIUM
     Indication: PAIN
     Dosage: 1 OR 4 TABLETS, DAILY
     Route: 048
     Dates: start: 201611
  4. HUMIRA [Suspect]
     Active Substance: ADALIMUMAB
     Route: 058
  5. OMEGA 3 [Concomitant]
     Active Substance: OMEGA-3 FATTY ACIDS
     Indication: OSTEOARTHRITIS
     Route: 048
     Dates: start: 201703
  6. DIPYRONE [Concomitant]
     Active Substance: DIPYRONE
     Indication: PAIN
     Route: 048
     Dates: start: 201611

REACTIONS (23)
  - Joint crepitation [Not Recovered/Not Resolved]
  - Sacroiliitis [Not Recovered/Not Resolved]
  - Hypersensitivity [Not Recovered/Not Resolved]
  - Mobility decreased [Unknown]
  - Gait inability [Not Recovered/Not Resolved]
  - Limb mass [Recovering/Resolving]
  - Skin plaque [Not Recovered/Not Resolved]
  - Joint swelling [Not Recovered/Not Resolved]
  - Insomnia [Unknown]
  - Fibromyalgia [Not Recovered/Not Resolved]
  - Drug ineffective [Not Recovered/Not Resolved]
  - Pain in extremity [Recovering/Resolving]
  - Osteoarthritis [Not Recovered/Not Resolved]
  - Myalgia [Not Recovered/Not Resolved]
  - Loss of personal independence in daily activities [Unknown]
  - Joint range of motion decreased [Not Recovered/Not Resolved]
  - Irritability [Recovering/Resolving]
  - Arthralgia [Recovering/Resolving]
  - Confusional state [Recovering/Resolving]
  - Arthralgia [Not Recovered/Not Resolved]
  - Pruritus [Not Recovered/Not Resolved]
  - Musculoskeletal pain [Not Recovered/Not Resolved]
  - Arthralgia [Not Recovered/Not Resolved]

NARRATIVE: CASE EVENT DATE: 2016
